FAERS Safety Report 5126777-8 (Version None)
Quarter: 2006Q4

REPORT INFORMATION
  Report Type: 
  Country: None (occurrence: None)
  Receive Date: 20061010
  Receipt Date: 20060926
  Transmission Date: 20070319
  Serious: Yes (Disabling)
  Sender: FDA-Public Use
  Company Number: 2006117406

PATIENT
  Age: 26 Year
  Sex: Female
  Weight: 132.9039 kg

DRUGS (1)
  1. SOMAVERT [Suspect]
     Indication: ACROMEGALY
     Dosage: 40 MG (20 MG, FREQUENCY: BID INTERVAL: EVERYDAY)
     Dates: start: 20040101

REACTIONS (8)
  - AMENORRHOEA [None]
  - BLOOD GROWTH HORMONE INCREASED [None]
  - BREAST PAIN [None]
  - CHEST INJURY [None]
  - FRACTURED COCCYX [None]
  - NUCLEAR MAGNETIC RESONANCE IMAGING ABNORMAL [None]
  - WEIGHT INCREASED [None]
  - X-RAY ABNORMAL [None]
